FAERS Safety Report 8525097-9 (Version None)
Quarter: 2012Q3

REPORT INFORMATION
  Report Type: 
  Country: None (occurrence: None)
  Receive Date: 20120720
  Receipt Date: 20120709
  Transmission Date: 20120928
  Serious: Yes (Other)
  Sender: FDA-Public Use
  Company Number: US-ROCHE-709231

PATIENT

DRUGS (4)
  1. CYCLOSPORINE [Suspect]
     Indication: PROPHYLAXIS AGAINST GRAFT VERSUS HOST DISEASE
     Dosage: ON DAY 3 TAPER BY 6 MONTHS
     Route: 065
  2. CELLCEPT [Suspect]
     Indication: PROPHYLAXIS AGAINST GRAFT VERSUS HOST DISEASE
     Dosage: FROM DAY 0 TO DAY 28 FOR RELATED DONORS AND DAY 100 FOR UNRELATED DONORS
     Route: 065
  3. MABTHERA [Suspect]
     Indication: MANTLE CELL LYMPHOMA
     Dosage: ON DAY  56, 63, 70, 77 POST TRANSPLANT: INFUSION: OTHER INDICATION CHRONIC LYMPHOCYTIC LEUKEMIA
     Route: 065
  4. ANTI-THYMOCYTE GLOBULIN NOS [Concomitant]
     Indication: PRODUCT USED FOR UNKNOWN INDICATION
     Dosage: DAY 11- DAY 7

REACTIONS (13)
  - PSEUDOMONAS INFECTION [None]
  - CYTOMEGALOVIRUS INFECTION [None]
  - CHRONIC LYMPHOCYTIC LEUKAEMIA RECURRENT [None]
  - KLEBSIELLA INFECTION [None]
  - MANTLE CELL LYMPHOMA [None]
  - SINUSITIS FUNGAL [None]
  - RESPIRATORY SYNCYTIAL VIRUS INFECTION [None]
  - GRAFT VERSUS HOST DISEASE [None]
  - POST TRANSPLANT LYMPHOPROLIFERATIVE DISORDER [None]
  - NEUTROPENIA [None]
  - INFLUENZA [None]
  - TRANSPLANT FAILURE [None]
  - HERPES ZOSTER [None]
